FAERS Safety Report 6999106-2 (Version None)
Quarter: 2010Q3

REPORT INFORMATION
  Report Type: 
  Country: None (occurrence: None)
  Receive Date: 20100920
  Receipt Date: 20100708
  Transmission Date: 20110219
  Serious: No
  Sender: FDA-Public Use
  Company Number: US-ASTRAZENECA-2010SE31841

PATIENT
  Age: 21453 Day
  Sex: Male
  Weight: 131.5 kg

DRUGS (12)
  1. SEROQUEL [Suspect]
     Indication: DEPRESSION
     Route: 048
     Dates: start: 20100622
  2. SEROQUEL [Suspect]
     Indication: SLEEP DISORDER
     Route: 048
     Dates: start: 20100622
  3. SEROQUEL [Suspect]
     Route: 048
     Dates: start: 20100626
  4. SEROQUEL [Suspect]
     Route: 048
     Dates: start: 20100626
  5. ATENOLOL [Concomitant]
  6. FOLIC ACID [Concomitant]
     Indication: CARDIAC DISORDER
  7. LISINOPRIL AND HYDROCHLOROTHIAZIDE [Concomitant]
  8. INDOMETHACIN [Concomitant]
     Indication: GOUT
  9. REQUIP [Concomitant]
     Indication: RESTLESS LEGS SYNDROME
  10. SYMCOR [Concomitant]
     Indication: HYPERCHOLESTEROLAEMIA
  11. WARFARIN [Concomitant]
     Indication: THROMBOSIS
  12. AMBIEN [Concomitant]
     Indication: SLEEP DISORDER

REACTIONS (3)
  - MYALGIA [None]
  - OEDEMA PERIPHERAL [None]
  - WEIGHT INCREASED [None]
